FAERS Safety Report 9612936 (Version 2)
Quarter: 2013Q4

REPORT INFORMATION
  Report Type: Spontaneous
  Country: US (occurrence: US)
  Receive Date: 20131010
  Receipt Date: 20131030
  Transmission Date: 20140711
  Serious: Yes (Hospitalization)
  Sender: FDA-Public Use
  Company Number: US-009507513-1310USA002715

PATIENT
  Age: 46 Year
  Sex: Female

DRUGS (4)
  1. REMERON [Suspect]
     Indication: ANTIDEPRESSANT THERAPY
     Dosage: 45 MG, QD
     Route: 048
     Dates: start: 2008
  2. DIAZEPAM [Concomitant]
     Dosage: UNK
     Dates: end: 2013
  3. TRAZODONE HYDROCHLORIDE [Concomitant]
     Dosage: UNK
     Dates: end: 2013
  4. TOPIRAMATE [Concomitant]
     Dosage: UNK
     Dates: end: 2013

REACTIONS (3)
  - Hospitalisation [Recovered/Resolved]
  - Thinking abnormal [Unknown]
  - Drug dose omission [Unknown]
